FAERS Safety Report 16984394 (Version 2)
Quarter: 2020Q1

REPORT INFORMATION
  Report Type: Spontaneous
  Country: US (occurrence: US)
  Receive Date: 20191101
  Receipt Date: 20200310
  Transmission Date: 20200409
  Serious: No
  Sender: FDA-Public Use
  Company Number: US-FARMAPROD-201908-1277

PATIENT
  Age: 73 Year
  Sex: Female

DRUGS (17)
  1. ASPIRINE [Concomitant]
     Active Substance: ASPIRIN
     Dosage: 1 TABLET BY MOUTH AS DIRECTED
     Route: 048
  2. PREDNISOLONE ACETATE. [Concomitant]
     Active Substance: PREDNISOLONE ACETATE
     Indication: NEUROTROPHIC KERATOPATHY
     Route: 047
     Dates: start: 20190509
  3. ERYTHROMYCIN. [Concomitant]
     Active Substance: ERYTHROMYCIN
     Indication: NEUROTROPHIC KERATOPATHY
  4. DOXYCYCLINE MONOHYDRATE [Concomitant]
     Active Substance: DOXYCYCLINE
     Indication: ULCERATIVE KERATITIS
  5. LEVOTHYROXINE. [Concomitant]
     Active Substance: LEVOTHYROXINE
  6. MYRBETRIQ [Concomitant]
     Active Substance: MIRABEGRON
     Route: 048
  7. OXERVATE [Suspect]
     Active Substance: CENEGERMIN-BKBJ
     Indication: NEUROTROPHIC KERATOPATHY
     Route: 047
     Dates: start: 20190808, end: 20191002
  8. PREDNISOLONE ACETATE. [Concomitant]
     Active Substance: PREDNISOLONE ACETATE
     Indication: ULCERATIVE KERATITIS
  9. ERYTHROMYCIN. [Concomitant]
     Active Substance: ERYTHROMYCIN
     Indication: ULCERATIVE KERATITIS
     Dosage: APPLY 1 SMALL AMOUNT INTO LEFT EYE AT BEDTIME
     Route: 047
     Dates: start: 20190122
  10. DOXYCYCLINE MONOHYDRATE [Concomitant]
     Active Substance: DOXYCYCLINE
     Indication: NEUROTROPHIC KERATOPATHY
     Route: 048
     Dates: start: 20181012
  11. LATANOPROST. [Concomitant]
     Active Substance: LATANOPROST
     Route: 047
  12. SERUM TEARS [Concomitant]
     Indication: ULCERATIVE KERATITIS
  13. DOXYCYCLINE HYCLATE. [Concomitant]
     Active Substance: DOXYCYCLINE HYCLATE
     Route: 048
  14. ATORVASTATIN [Concomitant]
     Active Substance: ATORVASTATIN
     Route: 048
  15. ESCITALOPRAM OXALATE. [Concomitant]
     Active Substance: ESCITALOPRAM OXALATE
     Route: 048
  16. SERUM TEARS [Concomitant]
     Indication: NEUROTROPHIC KERATOPATHY
     Dosage: 1 DROP AS DIRECTED
  17. VALTREX [Concomitant]
     Active Substance: VALACYCLOVIR HYDROCHLORIDE
     Route: 048

REACTIONS (2)
  - Eyelid irritation [Unknown]
  - Swelling of eyelid [Unknown]

NARRATIVE: CASE EVENT DATE: 20190815
